FAERS Safety Report 8264608-8 (Version None)
Quarter: 2012Q2

REPORT INFORMATION
  Report Type: 
  Country: None (occurrence: None)
  Receive Date: 20120403
  Receipt Date: 20120328
  Transmission Date: 20120825
  Serious: Yes (Other)
  Sender: FDA-Public Use
  Company Number: 2011MA001480

PATIENT
  Sex: Female
  Weight: 63.5036 kg

DRUGS (13)
  1. VAGIFEM [Concomitant]
  2. CALCIUM CARBONATE [Concomitant]
  3. MULTI-VITAMIN [Concomitant]
  4. CLORAZEPATE DIPOTASSIUM [Concomitant]
  5. NIASPAN [Concomitant]
  6. METAMUCIL-2 [Concomitant]
  7. VITAMIN D [Concomitant]
  8. CLONAZEPAM [Concomitant]
  9. PAXIL [Concomitant]
  10. METOCLOPRAMIDE [Suspect]
     Indication: GASTROOESOPHAGEAL REFLUX DISEASE
     Dosage: 10 MG;QID;PO
     Route: 048
     Dates: start: 20000808, end: 20100301
  11. LOSARTAN POTASSIUM [Concomitant]
  12. NEXIUM [Concomitant]
  13. LOVAZA [Concomitant]

REACTIONS (6)
  - TARDIVE DYSKINESIA [None]
  - HEAD TITUBATION [None]
  - CHOREA [None]
  - BEHCET'S SYNDROME [None]
  - EMOTIONAL DISORDER [None]
  - ECONOMIC PROBLEM [None]
